FAERS Safety Report 10205693 (Version 1)
Quarter: 2014Q2

REPORT INFORMATION
  Report Type: Report from Study
  Country: GB (occurrence: GB)
  Receive Date: 20140530
  Receipt Date: 20140530
  Transmission Date: 20141212
  Serious: Yes (Hospitalization)
  Sender: FDA-Public Use
  Company Number: GB-AMGEN-GBRCT2014039596

PATIENT
  Age: 69 Year
  Sex: Female
  Weight: 56 kg

DRUGS (17)
  1. ETANERCEPT [Suspect]
     Indication: PRODUCT USED FOR UNKNOWN INDICATION
     Dosage: 50 MG, QWK
     Route: 065
     Dates: start: 20130704
  2. BECLOMETHASONE                     /00212602/ [Concomitant]
     Dosage: UNK
     Dates: start: 20100124
  3. CALCIUM CARBONATE [Concomitant]
     Dosage: UNK
     Dates: start: 20081215
  4. ELOCON [Concomitant]
     Dosage: UNK
     Dates: start: 20100308
  5. PANTOPRAZOLE [Concomitant]
     Dosage: UNK
  6. CETIRIZINE [Concomitant]
     Dosage: UNK
     Dates: start: 20110718, end: 20131115
  7. CYCLIZINE [Concomitant]
     Dosage: UNK
     Dates: start: 20110815, end: 20131115
  8. ESOMEPRAZOLE [Concomitant]
     Dosage: UNK
     Dates: start: 20120315
  9. ASPIRIN [Concomitant]
     Dosage: UNK
     Dates: start: 20121209
  10. METOPROLOL [Concomitant]
     Dosage: UNK
     Dates: start: 20130525
  11. FOLIC ACID [Concomitant]
     Dosage: UNK
     Dates: start: 20130715
  12. SERETIDE [Concomitant]
     Dosage: UNK
     Dates: start: 20130715, end: 20131115
  13. SPIRIVA [Concomitant]
     Dosage: UNK
     Dates: start: 20130715, end: 20131115
  14. ESCITALOPRAM [Concomitant]
     Dosage: UNK
     Dates: start: 20131101
  15. FERROUS FUMARATE [Concomitant]
     Dosage: UNK
     Dates: start: 20131001
  16. CHLORPHENAMINE [Concomitant]
     Dosage: UNK
     Dates: start: 20131001
  17. SOLPADOL [Concomitant]
     Dosage: UNK
     Dates: start: 20140124

REACTIONS (1)
  - Alcoholism [Recovered/Resolved with Sequelae]
